FAERS Safety Report 5660969-4 (Version None)
Quarter: 2008Q1

REPORT INFORMATION
  Report Type: 
  Country: None (occurrence: None)
  Receive Date: 20080311
  Receipt Date: 20080228
  Transmission Date: 20080703
  Serious: Yes (Other)
  Sender: FDA-Public Use
  Company Number: US-PFIZER INC-2007049461

PATIENT
  Sex: Male

DRUGS (2)
  1. NEURONTIN [Suspect]
     Indication: NEUROPATHY PERIPHERAL
  2. GABAPENTIN [Suspect]
     Indication: NEUROPATHY PERIPHERAL

REACTIONS (7)
  - AGITATION [None]
  - COLON CANCER [None]
  - DRUG DEPENDENCE [None]
  - NERVOUSNESS [None]
  - RESTLESSNESS [None]
  - TREMOR [None]
  - WITHDRAWAL SYNDROME [None]
